FAERS Safety Report 9178498 (Version 1)
Quarter: 2012Q4

REPORT INFORMATION
  Report Type: 
  Country: US (occurrence: US)
  Receive Date: 20121029
  Receipt Date: 20121029
  Transmission Date: 20130627
  Serious: No
  Sender: FDA-Public Use
  Company Number: US-AMGEN-USASP2012054250

PATIENT
  Age: 57 Year
  Sex: Female
  Weight: 63.49 kg

DRUGS (8)
  1. ENBREL [Suspect]
     Indication: RHEUMATOID ARTHRITIS
     Dosage: 50 mg, qwk
     Route: 058
  2. AMOXICILLIN [Concomitant]
     Dosage: 500 mg, UNK
     Route: 048
  3. VENTOLIN                           /00139501/ [Concomitant]
     Dosage: UNK
  4. LEVOTHYROXINE [Concomitant]
     Dosage: 25 mug, UNK
     Route: 048
  5. HYDROCODONE/APAP [Concomitant]
     Dosage: 5-500 mg, UNK
     Route: 048
  6. CALCIUM [Concomitant]
     Dosage: 600 UNK, UNK
     Route: 048
  7. VITAMIN D /00107901/ [Concomitant]
     Dosage: 2000 unit, UNK
     Route: 048
  8. ETODOLAC [Concomitant]
     Dosage: 200 mg, UNK
     Route: 048

REACTIONS (1)
  - Drug ineffective [Unknown]
